FAERS Safety Report 8054922-3 (Version None)
Quarter: 2012Q1

REPORT INFORMATION
  Report Type: 
  Country: None (occurrence: None)
  Receive Date: 20120119
  Receipt Date: 20120111
  Transmission Date: 20120608
  Serious: Yes (Hospitalization, Other)
  Sender: FDA-Public Use
  Company Number: US-US-EMD SERONO, INC.-7106603

PATIENT
  Sex: Female

DRUGS (2)
  1. REBIF [Suspect]
     Indication: PRODUCT USED FOR UNKNOWN INDICATION
     Route: 058
     Dates: start: 20080111
  2. THYROID MEDICATION [Concomitant]
     Indication: HYPOTHYROIDISM

REACTIONS (8)
  - FACIAL BONES FRACTURE [None]
  - FOOT FRACTURE [None]
  - LOSS OF CONSCIOUSNESS [None]
  - CONCUSSION [None]
  - DIZZINESS [None]
  - FALL [None]
  - TOOTH FRACTURE [None]
  - TENDON RUPTURE [None]
